FAERS Safety Report 10679211 (Version 4)
Quarter: 2015Q1

REPORT INFORMATION
  Report Type: Spontaneous
  Country: FR (occurrence: FR)
  Receive Date: 20141229
  Receipt Date: 20150108
  Transmission Date: 20150720
  Serious: Yes (Hospitalization, Other)
  Sender: FDA-Public Use
  Company Number: FR-TEVA-307574ISR

PATIENT
  Age: 44 Year
  Sex: Female

DRUGS (3)
  1. MANTADIX [Concomitant]
     Active Substance: AMANTADINE HYDROCHLORIDE
     Indication: FATIGUE
     Dates: start: 201110
  2. COPAXONE [Suspect]
     Active Substance: GLATIRAMER ACETATE
     Dosage: 20 MILLIGRAM DAILY;
     Route: 058
     Dates: start: 20110811
  3. ANAFRANIL [Concomitant]
     Active Substance: CLOMIPRAMINE HYDROCHLORIDE
     Indication: PAIN IN EXTREMITY

REACTIONS (10)
  - Chest pain [Recovering/Resolving]
  - Paraesthesia [Recovering/Resolving]
  - Fatigue [Unknown]
  - Paralysis [Recovering/Resolving]
  - Pruritus [Recovering/Resolving]
  - Choking sensation [Recovered/Resolved]
  - VIIth nerve paralysis [Recovered/Resolved]
  - Dyspnoea [Recovering/Resolving]
  - Suffocation feeling [Recovering/Resolving]
  - Hypoaesthesia [Recovering/Resolving]

NARRATIVE: CASE EVENT DATE: 2011
